FAERS Safety Report 9896932 (Version 1)
Quarter: 2014Q1

REPORT INFORMATION
  Report Type: Spontaneous
  Country: US (occurrence: US)
  Receive Date: 20140214
  Receipt Date: 20140214
  Transmission Date: 20141002
  Serious: Yes (Other)
  Sender: FDA-Public Use
  Company Number: US-AMGEN-USASP2014010059

PATIENT
  Age: 83 Year
  Sex: Male

DRUGS (2)
  1. ENBREL [Suspect]
     Indication: PSORIASIS
     Dosage: 50 MG, QWK
     Route: 065
     Dates: start: 20130901, end: 20140117
  2. ENBREL [Suspect]
     Dosage: UNK
     Route: 065

REACTIONS (4)
  - Biopsy kidney [Unknown]
  - Blood creatinine increased [Unknown]
  - Proteinuria [Unknown]
  - Psoriasis [Not Recovered/Not Resolved]
